FAERS Safety Report 7536997-0 (Version None)
Quarter: 2011Q2

REPORT INFORMATION
  Report Type: 
  Country: None (occurrence: None)
  Receive Date: 20110609
  Receipt Date: 20110601
  Transmission Date: 20111010
  Serious: Yes (Hospitalization)
  Sender: FDA-Public Use
  Company Number: PHHY2011US47669

PATIENT
  Age: 50 Year
  Sex: Female

DRUGS (3)
  1. PREDNISONE [Suspect]
  2. TACROLIMUS [Suspect]
  3. SIROLIMUS [Suspect]

REACTIONS (4)
  - TOXICITY TO VARIOUS AGENTS [None]
  - RENAL FAILURE [None]
  - IMPAIRED HEALING [None]
  - WOUND INFECTION [None]
